FAERS Safety Report 7347203-4 (Version None)
Quarter: 2011Q1

REPORT INFORMATION
  Report Type: 
  Country: None (occurrence: None)
  Receive Date: 20110311
  Receipt Date: 20110309
  Transmission Date: 20110831
  Serious: Yes (Hospitalization, Disabling, Other)
  Sender: FDA-Public Use
  Company Number: US-PFIZER INC-2009296665

PATIENT
  Sex: Male

DRUGS (1)
  1. CHANTIX [Suspect]
     Indication: SMOKING CESSATION THERAPY
     Dosage: 0.5MG AND 1MG
     Dates: start: 20071001, end: 20071103

REACTIONS (9)
  - DEPRESSION [None]
  - PSYCHOTIC DISORDER [None]
  - SUICIDE ATTEMPT [None]
  - BIPOLAR DISORDER [None]
  - SCHIZOAFFECTIVE DISORDER [None]
  - INTENTIONAL OVERDOSE [None]
  - AGGRESSION [None]
  - DIZZINESS [None]
  - NAUSEA [None]
